FAERS Safety Report 8807816 (Version 1)
Quarter: 2012Q4

REPORT INFORMATION
  Report Type: Report from Study
  Country: FR (occurrence: FR)
  Receive Date: 20120925
  Receipt Date: 20120925
  Transmission Date: 20130627
  Serious: Yes (Hospitalization)
  Sender: FDA-Public Use
  Company Number: FR-ROCHE-1127089

PATIENT
  Age: 53 Year
  Sex: Female
  Weight: 70 kg

DRUGS (4)
  1. HERCEPTIN [Suspect]
     Indication: BREAST CANCER
     Dosage: date of last dose prior to SAE- 02/Aug/2012
     Route: 042
     Dates: start: 20120712
  2. DOCETAXEL [Suspect]
     Indication: BREAST CANCER
     Dosage: date of last dose prior to SAE - 02/Aug/2012
     Route: 042
     Dates: start: 20120712
  3. ALPRAZOLAM [Concomitant]
  4. PERTUZUMAB [Suspect]
     Indication: BREAST CANCER
     Dosage: date of last dose prior to SAE- 02/Aug/2012
     Route: 042
     Dates: start: 20120712

REACTIONS (1)
  - Clostridium colitis [Recovered/Resolved]
